FAERS Safety Report 9934725 (Version 1)
Quarter: 2014Q1

REPORT INFORMATION
  Report Type: Spontaneous
  Country: FR (occurrence: FR)
  Receive Date: 20140228
  Receipt Date: 20140228
  Transmission Date: 20141002
  Serious: Yes (Hospitalization)
  Sender: FDA-Public Use
  Company Number: PHHY2014FR022390

PATIENT
  Age: 70 Year
  Sex: Female

DRUGS (12)
  1. AMOXICILLIN SANDOZ [Suspect]
     Indication: BRONCHITIS
     Dosage: 1 DF, TID
     Route: 048
     Dates: start: 20140103, end: 20140110
  2. BRONCHOKOD [Suspect]
     Route: 048
     Dates: start: 20140103
  3. HEXASPRAY [Suspect]
     Dates: start: 20140103
  4. JANUVIA [Concomitant]
     Route: 065
  5. METFORMIN [Concomitant]
     Route: 065
  6. DIAMICRON [Concomitant]
     Route: 065
  7. CRESTOR [Concomitant]
  8. CALPEROS D3 [Concomitant]
     Route: 065
  9. KARDEGIC [Concomitant]
     Route: 065
  10. LEVOTHYROX [Concomitant]
     Route: 065
  11. PARACETAMOL [Concomitant]
     Route: 065
  12. RILMENIDINE [Concomitant]

REACTIONS (1)
  - Vascular purpura [Recovered/Resolved]
